FAERS Safety Report 12138752 (Version 1)
Quarter: 2016Q1

REPORT INFORMATION
  Report Type: Report from Study
  Country: US (occurrence: US)
  Receive Date: 20160302
  Receipt Date: 20160302
  Transmission Date: 20160526
  Serious: Yes (Death, Hospitalization, Other)
  Sender: FDA-Public Use
  Company Number: US-JNJFOC-20160121013

PATIENT
  Sex: Male

DRUGS (5)
  1. IMBRUVICA [Suspect]
     Active Substance: IBRUTINIB
     Indication: CHRONIC LYMPHOCYTIC LEUKAEMIA
     Route: 048
     Dates: start: 20151008
  2. ZETIA [Concomitant]
     Active Substance: EZETIMIBE
  3. FENOFIBRATE. [Concomitant]
     Active Substance: FENOFIBRATE
  4. TERAZOSIN HYDROCHLORIDE. [Concomitant]
     Active Substance: TERAZOSIN HYDROCHLORIDE
  5. FINASTERIDE. [Concomitant]
     Active Substance: FINASTERIDE

REACTIONS (6)
  - Autoimmune haemolytic anaemia [Unknown]
  - Disease progression [Fatal]
  - Epistaxis [Unknown]
  - Pancytopenia [Unknown]
  - Febrile neutropenia [Fatal]
  - Encephalopathy [Unknown]
